FAERS Safety Report 25500064 (Version 1)
Quarter: 2025Q2

REPORT INFORMATION
  Report Type: Spontaneous
  Country: US (occurrence: None)
  Receive Date: 20250628
  Receipt Date: 20250628
  Transmission Date: 20250717
  Serious: Yes (Hospitalization, Other)
  Sender: FDA-CTU
  Company Number: None

PATIENT
  Age: 35 Year
  Sex: Female
  Weight: 54 kg

DRUGS (6)
  1. BOTOX [Suspect]
     Active Substance: ONABOTULINUMTOXINA
     Indication: Skin wrinkling
     Dates: start: 20250404, end: 20250404
  2. PROZAC [Suspect]
     Active Substance: FLUOXETINE HYDROCHLORIDE
  3. LEXAPRO [Suspect]
     Active Substance: ESCITALOPRAM OXALATE
  4. WELLBUTRIN [Suspect]
     Active Substance: BUPROPION HYDROCHLORIDE
  5. XANAX [Suspect]
     Active Substance: ALPRAZOLAM
  6. FLONASE [Concomitant]
     Active Substance: FLUTICASONE PROPIONATE

REACTIONS (8)
  - Electric shock sensation [None]
  - Cardiac disorder [None]
  - Brain fog [None]
  - Dyspnoea [None]
  - Dizziness [None]
  - Amnesia [None]
  - Dry mouth [None]
  - Loss of personal independence in daily activities [None]

NARRATIVE: CASE EVENT DATE: 20250404
